FAERS Safety Report 25706649 (Version 1)
Quarter: 2025Q3

REPORT INFORMATION
  Report Type: Report from Study
  Country: EU (occurrence: EU)
  Receive Date: 20250820
  Receipt Date: 20250820
  Transmission Date: 20251021
  Serious: Yes (Other)
  Sender: GILEAD
  Company Number: EU-GILEAD-2025-0724321

PATIENT

DRUGS (18)
  1. LENACAPAVIR [Suspect]
     Active Substance: LENACAPAVIR
     Indication: HIV infection
     Route: 065
     Dates: start: 20201029
  2. LENACAPAVIR [Suspect]
     Active Substance: LENACAPAVIR
     Route: 065
     Dates: start: 20210416
  3. LENACAPAVIR [Suspect]
     Active Substance: LENACAPAVIR
     Route: 065
     Dates: start: 20230130
  4. EMTRIVA [Concomitant]
     Active Substance: EMTRICITABINE
     Dates: start: 20201029
  5. EMTRIVA [Concomitant]
     Active Substance: EMTRICITABINE
     Dates: start: 20230130
  6. VEMLIDY [Concomitant]
     Active Substance: TENOFOVIR ALAFENAMIDE FUMARATE
     Dates: start: 20201029
  7. VEMLIDY [Concomitant]
     Active Substance: TENOFOVIR ALAFENAMIDE FUMARATE
     Dates: start: 20230130
  8. VIREAD [Concomitant]
     Active Substance: TENOFOVIR DISOPROXIL FUMARATE
     Dates: start: 20210416
  9. DARUNAVIR [Concomitant]
     Active Substance: DARUNAVIR
     Dates: start: 20201029
  10. DARUNAVIR [Concomitant]
     Active Substance: DARUNAVIR
     Dates: start: 20230130
  11. DOLUTEGRAVIR [Concomitant]
     Active Substance: DOLUTEGRAVIR
     Dates: start: 20201029
  12. DOLUTEGRAVIR [Concomitant]
     Active Substance: DOLUTEGRAVIR
     Dates: start: 20210416
  13. DOLUTEGRAVIR [Concomitant]
     Active Substance: DOLUTEGRAVIR
     Dates: start: 20230130
  14. COBICISTAT [Concomitant]
     Active Substance: COBICISTAT
     Dates: start: 20201029
  15. COBICISTAT [Concomitant]
     Active Substance: COBICISTAT
     Dates: start: 20230130
  16. LAMIVUDINE [Concomitant]
     Active Substance: LAMIVUDINE
     Dates: start: 20210416
  17. DORAVIRINE [Concomitant]
     Active Substance: DORAVIRINE
     Dates: start: 20210416
  18. RITONAVIR [Concomitant]
     Active Substance: RITONAVIR
     Dates: start: 20210416

REACTIONS (2)
  - HIV viraemia [Unknown]
  - Drug resistance mutation [Unknown]
